FAERS Safety Report 9371422 (Version 2)
Quarter: 2013Q3

REPORT INFORMATION
  Report Type: Spontaneous
  Country: PR (occurrence: US)
  Receive Date: 20130627
  Receipt Date: 20130815
  Transmission Date: 20140515
  Serious: Yes (Death, Hospitalization, Other)
  Sender: FDA-Public Use
  Company Number: PR-INCYTE CORPORATION-2013IN001346

PATIENT
  Age: 76 Year
  Sex: Male
  Weight: 69.39 kg

DRUGS (1)
  1. JAKAFI [Suspect]
     Indication: MYELOFIBROSIS
     Dosage: 10 MG, QD
     Route: 048
     Dates: start: 20130410

REACTIONS (4)
  - Disease progression [Fatal]
  - Pancytopenia [Unknown]
  - Anaemia [Unknown]
  - No therapeutic response [Unknown]
